FAERS Safety Report 9666777 (Version 1)
Quarter: 2013Q4

REPORT INFORMATION
  Report Type: Spontaneous
  Country: US (occurrence: US)
  Receive Date: 20131104
  Receipt Date: 20131104
  Transmission Date: 20140711
  Serious: No
  Sender: FDA-Public Use
  Company Number: US-BIOGENIDEC-2013BI087754

PATIENT
  Sex: Female

DRUGS (10)
  1. TECFIDERA [Suspect]
     Indication: MULTIPLE SCLEROSIS
     Route: 048
     Dates: start: 20130705
  2. ALBUTEROL SULFATE [Concomitant]
  3. AMITRIPTYLINE HCL [Concomitant]
  4. ASPIRIN [Concomitant]
  5. COREG CR [Concomitant]
  6. FLUOXETINE HCL [Concomitant]
  7. HYZAAR [Concomitant]
  8. OXYCONTIN [Concomitant]
  9. PREVACID [Concomitant]
  10. SPIRIVA HANDIHALER [Concomitant]

REACTIONS (1)
  - Abdominal discomfort [Unknown]
